FAERS Safety Report 5639842-3 (Version None)
Quarter: 2008Q1

REPORT INFORMATION
  Report Type: 
  Country: None (occurrence: None)
  Receive Date: 20080226
  Receipt Date: 20080226
  Transmission Date: 20080703
  Serious: Yes (Hospitalization, Congenital Anomaly)
  Sender: FDA-Public Use
  Company Number: None

PATIENT
  Sex: Male
  Weight: 30.8446 kg

DRUGS (2)
  1. BOTOX   100 UNITS PER VIAL   ALLERGAN [Suspect]
     Indication: MUSCLE SPASTICITY
     Dosage: 300 UNITS  ONCE  IM
     Route: 030
     Dates: start: 20050913, end: 20050913
  2. BOTOX   100 UNITS PER VIAL   ALLERGAN [Suspect]

REACTIONS (7)
  - CONDITION AGGRAVATED [None]
  - DYSPHAGIA [None]
  - NAUSEA [None]
  - PNEUMONIA ASPIRATION [None]
  - PYREXIA [None]
  - UROSEPSIS [None]
  - VOMITING [None]
